FAERS Safety Report 9428837 (Version 1)
Quarter: 2013Q3

REPORT INFORMATION
  Report Type: Report from Study
  Country: US (occurrence: US)
  Receive Date: 20130730
  Receipt Date: 20130730
  Transmission Date: 20140515
  Serious: No
  Sender: FDA-Public Use
  Company Number: US-ABBOTT-13P-163-1041572-00

PATIENT
  Age: 67 Year
  Sex: Female
  Weight: 74.91 kg

DRUGS (5)
  1. NIASPAN (COATED) [Suspect]
     Indication: FAMILIAL RISK FACTOR
     Dosage: AT BEDTIME
     Route: 048
     Dates: start: 20130123
  2. NIASPAN (COATED) [Suspect]
     Indication: FAMILIAL RISK FACTOR
  3. ASPIRIN [Concomitant]
     Indication: PRODUCT USED FOR UNKNOWN INDICATION
     Dosage: 30 MINUTES PRIOR TO DOSE OF NIASPAN
     Route: 048
  4. LIPITOR [Concomitant]
     Indication: PRODUCT USED FOR UNKNOWN INDICATION
     Route: 048
  5. ATENOLOL [Concomitant]
     Indication: MIGRAINE
     Route: 048

REACTIONS (2)
  - Chest pain [Recovered/Resolved]
  - Pain in jaw [Recovered/Resolved]
